FAERS Safety Report 4717877-2 (Version None)
Quarter: 2005Q3

REPORT INFORMATION
  Report Type: 
  Country: None (occurrence: None)
  Receive Date: 20050718
  Receipt Date: 20050718
  Transmission Date: 20060218
  Serious: Yes (Life-Threatening)
  Sender: FDA-Public Use
  Company Number: None

PATIENT
  Age: 55 Year
  Sex: Male
  Weight: 127 kg

DRUGS (4)
  1. SIROLIMUS    1MG [Suspect]
     Indication: IMMUNOSUPPRESSION
     Dosage: 5MG   ONCE  ORAL
     Route: 048
     Dates: start: 20050712, end: 20050712
  2. SIROLIMUS    1MG [Suspect]
     Indication: RENAL TRANSPLANT
     Dosage: 5MG   ONCE  ORAL
     Route: 048
     Dates: start: 20050712, end: 20050712
  3. ATOVAQUONE [Suspect]
     Indication: PNEUMOCYSTIS JIROVECI PNEUMONIA
     Dosage: 1500MG   DAILY   ORAL
     Route: 048
     Dates: start: 20050703, end: 20050714
  4. ATOVAQUONE [Suspect]
     Indication: PROPHYLAXIS
     Dosage: 1500MG   DAILY   ORAL
     Route: 048
     Dates: start: 20050703, end: 20050714

REACTIONS (7)
  - ANGIONEUROTIC OEDEMA [None]
  - BODY TEMPERATURE INCREASED [None]
  - CHILLS [None]
  - COMPLICATIONS OF TRANSPLANTED KIDNEY [None]
  - DIALYSIS [None]
  - PETECHIAE [None]
  - RASH MACULAR [None]
